FAERS Safety Report 10672727 (Version 1)
Quarter: 2014Q4

REPORT INFORMATION
  Report Type: Spontaneous
  Country: US (occurrence: US)
  Receive Date: 20141223
  Receipt Date: 20141223
  Transmission Date: 20150529
  Serious: Yes (Other)
  Sender: FDA-Public Use
  Company Number: PHHY2014US161739

PATIENT
  Age: 33 Year
  Sex: Female

DRUGS (6)
  1. TERBINAFINE [Suspect]
     Active Substance: TERBINAFINE
     Indication: FUNGAL ABSCESS CENTRAL NERVOUS SYSTEM
     Route: 042
  2. VORICONAZOLE. [Concomitant]
     Active Substance: VORICONAZOLE
     Indication: FUSARIUM INFECTION
  3. TERBINAFINE [Suspect]
     Active Substance: TERBINAFINE
     Indication: FUSARIUM INFECTION
  4. AMPHOTERICIN [Suspect]
     Active Substance: AMPHOTERICIN B
     Indication: FUSARIUM INFECTION
  5. AMPHOTERICIN [Suspect]
     Active Substance: AMPHOTERICIN B
     Indication: FUNGAL ABSCESS CENTRAL NERVOUS SYSTEM
     Route: 042
  6. VORICONAZOLE. [Concomitant]
     Active Substance: VORICONAZOLE
     Indication: FUNGAL ABSCESS CENTRAL NERVOUS SYSTEM
     Route: 042

REACTIONS (3)
  - Blood disorder [Unknown]
  - Leukocytosis [Unknown]
  - Cachexia [Unknown]
